FAERS Safety Report 5800892-5 (Version None)
Quarter: 2008Q3

REPORT INFORMATION
  Report Type: 
  Country: None (occurrence: None)
  Receive Date: 20080701
  Receipt Date: 20080616
  Transmission Date: 20090109
  Serious: Yes (Hospitalization)
  Sender: FDA-Public Use
  Company Number: TNZFR200800095

PATIENT
  Age: 54 Year
  Sex: Male

DRUGS (4)
  1. INNOHEP [Suspect]
     Indication: PULMONARY EMBOLISM
     Dosage: 18000 IU, DAILY, SUBCUTANEOUS
     Route: 058
     Dates: start: 20080410, end: 20080511
  2. MEDROL [Suspect]
     Indication: NON-SMALL CELL LUNG CANCER
     Dosage: 200 MG, DAILY X 2, ORAL
     Route: 048
     Dates: end: 20080516
  3. LEXOMIL (BROMAZEPAM) [Concomitant]
  4. OXYGEN (OXYGEN) [Concomitant]

REACTIONS (9)
  - ANAEMIA [None]
  - ASTHENIA [None]
  - BLOOD PRESSURE DECREASED [None]
  - GASTRIC ULCER HAEMORRHAGE [None]
  - HEART RATE INCREASED [None]
  - OESOPHAGEAL CANDIDIASIS [None]
  - RESPIRATORY DISTRESS [None]
  - SOMNOLENCE [None]
  - THROMBOSIS [None]
